FAERS Safety Report 16444708 (Version 2)
Quarter: 2019Q3

REPORT INFORMATION
  Report Type: Report from Study
  Country: US (occurrence: US)
  Receive Date: 20190618
  Receipt Date: 20190929
  Transmission Date: 20191004
  Serious: Yes (Hospitalization)
  Sender: FDA-Public Use
  Company Number: PHHO2019US006288

PATIENT
  Age: 57 Year
  Sex: Female
  Weight: 76 kg

DRUGS (3)
  1. GSK1120212 [Suspect]
     Active Substance: TRAMETINIB
     Dosage: 1.5 MG, QD
     Route: 048
     Dates: start: 20140116, end: 20140212
  2. GSK2141795 [Suspect]
     Active Substance: UPROSERTIB
     Indication: TRIPLE NEGATIVE BREAST CANCER
     Dosage: 50 MG, QD
     Route: 048
     Dates: start: 20140116, end: 20140212
  3. GSK1120212 [Suspect]
     Active Substance: TRAMETINIB
     Indication: TRIPLE NEGATIVE BREAST CANCER
     Dosage: 2 MG, QD
     Route: 048
     Dates: start: 20131219

REACTIONS (3)
  - Dyspnoea [Unknown]
  - Lung infection [Recovered/Resolved]
  - Pneumonitis [Unknown]

NARRATIVE: CASE EVENT DATE: 20140101
